FAERS Safety Report 12564557 (Version 2)
Quarter: 2016Q3

REPORT INFORMATION
  Report Type: Spontaneous
  Country: DE (occurrence: DE)
  Receive Date: 20160718
  Receipt Date: 20160815
  Transmission Date: 20161109
  Serious: Yes (Disabling)
  Sender: FDA-Public Use
  Company Number: DE-ROCHE-1795743

PATIENT
  Age: 48 Year
  Sex: Male
  Weight: 107 kg

DRUGS (14)
  1. ALLOPURINOL. [Concomitant]
     Active Substance: ALLOPURINOL
     Route: 065
  2. APIDRA [Concomitant]
     Active Substance: INSULIN GLULISINE
  3. AVASTIN [Suspect]
     Active Substance: BEVACIZUMAB
     Indication: DIABETIC RETINAL OEDEMA
     Dosage: 3 WEEKS INJECTIONS,FOLLOWED BY A 4 WEEK BREAK?26 ADMINISTRATIONS
     Route: 050
     Dates: start: 2011
  4. AVASTIN [Suspect]
     Active Substance: BEVACIZUMAB
     Dosage: 14 ADMINISTRATIONS
     Route: 050
     Dates: start: 20150129, end: 20160707
  5. METOHEXAL [Concomitant]
     Active Substance: METOPROLOL SUCCINATE
     Dosage: 2 X 0.5 DF
     Route: 065
  6. LUCENTIS [Suspect]
     Active Substance: RANIBIZUMAB
     Indication: DIABETIC RETINAL OEDEMA
     Dosage: 15 ADMINISTRATIONS
     Route: 050
     Dates: start: 2011
  7. RAMIPRIL. [Concomitant]
     Active Substance: RAMIPRIL
     Route: 065
  8. TOREM [Concomitant]
     Active Substance: TORSEMIDE
     Dosage: 1-0.5-0
     Route: 065
  9. ATORVASTATIN [Concomitant]
     Active Substance: ATORVASTATIN
     Route: 065
  10. EYLEA [Concomitant]
     Active Substance: AFLIBERCEPT
     Indication: DIABETIC RETINAL OEDEMA
     Dosage: 12 ADMINISTRATIONS
     Route: 050
     Dates: start: 2011
  11. ASPIRIN. [Concomitant]
     Active Substance: ASPIRIN
     Route: 065
  12. PANTOZOL [Concomitant]
     Active Substance: PANTOPRAZOLE SODIUM
     Route: 065
  13. LEVEMIR [Concomitant]
     Active Substance: INSULIN DETEMIR
  14. SPIRONOLACTON [Concomitant]
     Active Substance: SPIRONOLACTONE
     Dosage: 1-0-0
     Route: 065

REACTIONS (3)
  - Off label use [Unknown]
  - Right ventricular failure [Recovered/Resolved]
  - Ascites [Recovered/Resolved]

NARRATIVE: CASE EVENT DATE: 2011
